FAERS Safety Report 21615280 (Version 2)
Quarter: 2023Q2

REPORT INFORMATION
  Report Type: Spontaneous
  Country: US (occurrence: US)
  Receive Date: 20221118
  Receipt Date: 20230515
  Transmission Date: 20230721
  Serious: Yes (Hospitalization)
  Sender: FDA-Public Use
  Company Number: US-SAGENT PHARMACEUTICALS-2022SAG002330

PATIENT
  Age: 52 Year
  Sex: Female

DRUGS (2)
  1. GEMCITABINE [Suspect]
     Active Substance: GEMCITABINE
     Indication: HER2 positive breast cancer
     Dosage: 1000 MG/M2
  2. MARGETUXIMAB [Concomitant]
     Active Substance: MARGETUXIMAB
     Indication: HER2 positive breast cancer
     Dosage: 15 MG/KG

REACTIONS (2)
  - Peripheral ischaemia [Recovered/Resolved with Sequelae]
  - Dry gangrene [Recovered/Resolved]
